FAERS Safety Report 23483399 (Version 3)
Quarter: 2024Q2

REPORT INFORMATION
  Report Type: Spontaneous
  Country: US (occurrence: US)
  Receive Date: 20240205
  Receipt Date: 20240426
  Transmission Date: 20240716
  Serious: No
  Sender: FDA-Public Use
  Company Number: US-PFIZER INC-202400029997

PATIENT
  Age: 66 Year
  Sex: Female
  Weight: 83.9 kg

DRUGS (2)
  1. PAXLOVID [Suspect]
     Active Substance: NIRMATRELVIR\RITONAVIR
     Indication: COVID-19 treatment
     Dosage: (300/100), 2X/DAY
     Dates: start: 20240120, end: 20240124
  2. LISINOPRIL [Concomitant]
     Active Substance: LISINOPRIL
     Dosage: LONG TERM
     Dates: start: 2015

REACTIONS (3)
  - COVID-19 [Recovered/Resolved]
  - Disease recurrence [Recovered/Resolved]
  - Diarrhoea [Recovered/Resolved]

NARRATIVE: CASE EVENT DATE: 20240122
